FAERS Safety Report 18909413 (Version 1)
Quarter: 2021Q1

REPORT INFORMATION
  Report Type: Spontaneous
  Country: US (occurrence: US)
  Receive Date: 20210217
  Receipt Date: 20210217
  Transmission Date: 20210420
  Serious: Yes (Other)
  Sender: FDA-Public Use
  Company Number: None

PATIENT
  Sex: Male

DRUGS (5)
  1. DILTIAZEM. [Concomitant]
     Active Substance: DILTIAZEM
  2. REPATHA [Suspect]
     Active Substance: EVOLOCUMAB
     Dosage: ?          QUANTITY:6 DF DOSAGE FORM;?
     Route: 058
     Dates: start: 20190610
  3. MELOXICAM. [Concomitant]
     Active Substance: MELOXICAM
  4. OMEPRAZOLE. [Concomitant]
     Active Substance: OMEPRAZOLE
  5. ALLOPURINOL. [Concomitant]
     Active Substance: ALLOPURINOL

REACTIONS (2)
  - Dyspnoea [None]
  - Muscle spasms [None]
